FAERS Safety Report 25312303 (Version 2)
Quarter: 2025Q2

REPORT INFORMATION
  Report Type: Report from Study
  Country: TW (occurrence: TW)
  Receive Date: 20250514
  Receipt Date: 20250602
  Transmission Date: 20250716
  Serious: Yes (Death, Life-Threatening, Other)
  Sender: ROCHE
  Company Number: TW-ROCHE-10000278260

PATIENT
  Age: 72 Year
  Sex: Male

DRUGS (2)
  1. AVASTIN [Suspect]
     Active Substance: BEVACIZUMAB
     Indication: Non-small cell lung cancer
     Route: 065
     Dates: start: 20241204
  2. TECENTRIQ [Suspect]
     Active Substance: ATEZOLIZUMAB
     Indication: Non-small cell lung cancer
     Route: 065
     Dates: start: 20241204

REACTIONS (7)
  - Pneumonitis [Unknown]
  - Respiratory disorder [Unknown]
  - Metastases to lung [Unknown]
  - White blood cell count decreased [Unknown]
  - Haemoglobin decreased [Unknown]
  - Nosocomial infection [Unknown]
  - Death [Fatal]

NARRATIVE: CASE EVENT DATE: 20250501
